FAERS Safety Report 5966184-9 (Version None)
Quarter: 2008Q4

REPORT INFORMATION
  Report Type: 
  Country: None (occurrence: None)
  Receive Date: 20081119
  Receipt Date: 20080730
  Transmission Date: 20090506
  Serious: No
  Sender: FDA-Public Use
  Company Number: WAES 0807USA05705

PATIENT
  Age: 86 Year
  Sex: Male

DRUGS (12)
  1. JANUVIA [Suspect]
     Indication: DIABETES MELLITUS
     Dosage: 100 MG/DAILY/PO
     Route: 048
     Dates: start: 20080501
  2. CYMBALTA [Concomitant]
  3. KLOR-CON [Concomitant]
  4. NITROSTAT [Concomitant]
  5. PLAVIX [Concomitant]
  6. PRINIVIL [Concomitant]
  7. ASPIRIN [Concomitant]
  8. FELODIPINE [Concomitant]
  9. FUROSEMIDE [Concomitant]
  10. LEVOTHYROXINE SODIUM [Concomitant]
  11. PREDNISONE TAB [Concomitant]
  12. VITAMINS (UNSPECIFIED) [Concomitant]

REACTIONS (5)
  - DIARRHOEA [None]
  - HEADACHE [None]
  - OCULAR HYPERAEMIA [None]
  - OROPHARYNGEAL PAIN [None]
  - RHINORRHOEA [None]
